FAERS Safety Report 23247999 (Version 1)
Quarter: 2023Q4

REPORT INFORMATION
  Report Type: Spontaneous
  Country: DE (occurrence: DE)
  Receive Date: 20231130
  Receipt Date: 20231130
  Transmission Date: 20240109
  Serious: Yes (Hospitalization, Other)
  Sender: FDA-Public Use
  Company Number: DE-ABBVIE-5498496

PATIENT
  Sex: Female

DRUGS (6)
  1. PREDNISOLONE [Suspect]
     Active Substance: PREDNISOLONE
     Indication: Crohn^s disease
     Route: 065
     Dates: end: 202309
  2. USTEKINUMAB [Suspect]
     Active Substance: USTEKINUMAB
     Indication: Crohn^s disease
     Dosage: START DATE: //2021
     Route: 065
     Dates: end: 202309
  3. ADALIMUMAB [Suspect]
     Active Substance: ADALIMUMAB\ISOPROPYL ALCOHOL
     Indication: Crohn^s disease
     Route: 058
  4. VEDOLIZUMAB [Concomitant]
     Active Substance: VEDOLIZUMAB
     Indication: Crohn^s disease
  5. AZATHIOPRINE [Concomitant]
     Active Substance: AZATHIOPRINE
     Indication: Crohn^s disease
  6. INFLIXIMAB [Concomitant]
     Active Substance: INFLIXIMAB
     Indication: Crohn^s disease

REACTIONS (14)
  - Haematochezia [Unknown]
  - Ileal ulcer [Unknown]
  - Intestinal anastomosis [Unknown]
  - Gastrointestinal erosion [Unknown]
  - Ileus [Unknown]
  - Small intestinal resection [Unknown]
  - Neoplasm [Unknown]
  - Lymphadenopathy [Unknown]
  - Abdominal discomfort [Unknown]
  - Insomnia [Unknown]
  - Gastrointestinal wall thickening [Unknown]
  - Pyrexia [Unknown]
  - Depression [Unknown]
  - Eating disorder [Unknown]

NARRATIVE: CASE EVENT DATE: 20070101
